FAERS Safety Report 16113069 (Version 2)
Quarter: 2024Q3

REPORT INFORMATION
  Report Type: Spontaneous
  Country: US (occurrence: US)
  Receive Date: 20190325
  Receipt Date: 20240819
  Transmission Date: 20241017
  Serious: Yes (Other)
  Sender: AMGEN
  Company Number: US-AMGEN-USASP2019045344

PATIENT
  Sex: Male

DRUGS (9)
  1. BLINATUMOMAB [Suspect]
     Active Substance: BLINATUMOMAB
     Indication: Chronic myeloid leukaemia recurrent
     Dosage: UNK
     Route: 065
     Dates: start: 2017
  2. BLINATUMOMAB [Suspect]
     Active Substance: BLINATUMOMAB
     Dosage: UNK
     Route: 065
     Dates: start: 2017
  3. BLINATUMOMAB [Suspect]
     Active Substance: BLINATUMOMAB
     Dosage: UNK
     Route: 065
     Dates: start: 2017
  4. PREDNISONE [Suspect]
     Active Substance: PREDNISONE
     Indication: Chronic myeloid leukaemia recurrent
     Dosage: UNK
     Route: 065
     Dates: start: 2017
  5. VINCRISTINE [Concomitant]
     Active Substance: VINCRISTINE
     Indication: Chronic myeloid leukaemia recurrent
     Dosage: UNK
     Route: 065
     Dates: start: 2017
  6. VINCRISTINE [Concomitant]
     Active Substance: VINCRISTINE
     Indication: Chronic myeloid leukaemia
     Dosage: UNK
     Route: 065
     Dates: start: 2017
  7. BOSUTINIB [Concomitant]
     Active Substance: BOSUTINIB
     Indication: Chronic myeloid leukaemia recurrent
     Dosage: UNK
     Route: 065
  8. METHOTREXATE [Concomitant]
     Active Substance: METHOTREXATE
     Indication: Chronic myeloid leukaemia recurrent
     Dosage: UNK
     Route: 065
  9. METHOTREXATE [Concomitant]
     Active Substance: METHOTREXATE
     Indication: Neurotoxicity
     Dosage: UNK
     Route: 029

REACTIONS (5)
  - Chronic myeloid leukaemia [Unknown]
  - Central nervous system leukaemia [Recovered/Resolved]
  - Drug ineffective for unapproved indication [Unknown]
  - Bone pain [Unknown]
  - Off label use [Unknown]

NARRATIVE: CASE EVENT DATE: 20170101
